FAERS Safety Report 7009390-7 (Version None)
Quarter: 2010Q3

REPORT INFORMATION
  Report Type: 
  Country: None (occurrence: None)
  Receive Date: 20100921
  Receipt Date: 20061016
  Transmission Date: 20110219
  Serious: Yes (Hospitalization)
  Sender: FDA-Public Use
  Company Number: US-SEPTODONT-200600112

PATIENT
  Age: 54 Year
  Sex: Female
  Weight: 82.1011 kg

DRUGS (4)
  1. SEPTOCAINE [Suspect]
     Indication: LOCAL ANAESTHESIA
     Dosage: 1.5 ML DENTAL
     Route: 004
     Dates: start: 20060320
  2. ZOLOFT [Concomitant]
  3. PROTONIX (RIVASTIGMINE) [Concomitant]
  4. BENZO GEL (BENZOCAINE 20%) [Concomitant]

REACTIONS (3)
  - CLONUS [None]
  - DISORIENTATION [None]
  - SYNCOPE [None]
